FAERS Safety Report 8572749-0 (Version None)
Quarter: 2012Q3

REPORT INFORMATION
  Report Type: 
  Country: None (occurrence: None)
  Receive Date: 20120806
  Receipt Date: 20120731
  Transmission Date: 20120928
  Serious: Yes (Other)
  Sender: FDA-Public Use
  Company Number: IE-PFIZER INC-2012185021

PATIENT
  Age: 55 Year
  Sex: Female

DRUGS (5)
  1. LIPITOR [Suspect]
     Dosage: 40 MG, 1X/DAY
  2. NAUDICELLE [Concomitant]
     Dosage: ONE DAILY
  3. NEXIUM [Concomitant]
     Dosage: 40 MG, 1X/DAY
  4. FOSALAN [Concomitant]
     Dosage: 70 MG, WEEKLY
  5. CALCICHEW-D3 [Concomitant]
     Dosage: 2 DAILY

REACTIONS (4)
  - ABDOMINAL PAIN [None]
  - DIARRHOEA [None]
  - DYSGEUSIA [None]
  - VOMITING [None]
